FAERS Safety Report 25734304 (Version 2)
Quarter: 2025Q4

REPORT INFORMATION
  Report Type: Report from Study
  Country: CA (occurrence: CA)
  Receive Date: 20250828
  Receipt Date: 20251003
  Transmission Date: 20260117
  Serious: Yes (Other)
  Sender: CELLTRION
  Company Number: CA-CELLTRION INC.-2025CA013333

PATIENT

DRUGS (7)
  1. USTEKINUMAB [Suspect]
     Active Substance: USTEKINUMAB
     Indication: Crohn^s disease
     Dosage: 90MG EVERY 8 WEEKS
     Route: 058
     Dates: start: 20250110
  2. USTEKINUMAB [Suspect]
     Active Substance: USTEKINUMAB
     Dosage: 90MG EVERY 8 WEEKS
     Route: 058
     Dates: start: 20250325
  3. USTEKINUMAB [Suspect]
     Active Substance: USTEKINUMAB
     Dosage: 90MG EVERY 8 WEEKS
     Route: 058
     Dates: start: 20250520
  4. USTEKINUMAB [Suspect]
     Active Substance: USTEKINUMAB
     Dosage: 90MG EVERY 8 WEEKS
     Route: 058
     Dates: start: 20250715
  5. USTEKINUMAB [Suspect]
     Active Substance: USTEKINUMAB
     Dosage: 90MG EVERY 8 WEEKS
     Route: 058
     Dates: start: 20250909
  6. REMICADE [Concomitant]
     Active Substance: INFLIXIMAB
  7. IRON [Concomitant]
     Active Substance: IRON
     Dosage: MONTHLY IV
     Route: 042

REACTIONS (3)
  - Tendonitis [Recovering/Resolving]
  - Localised infection [Recovered/Resolved]
  - Intentional dose omission [Unknown]

NARRATIVE: CASE EVENT DATE: 20250401
